FAERS Safety Report 19217591 (Version 1)
Quarter: 2021Q2

REPORT INFORMATION
  Report Type: Spontaneous
  Country: US (occurrence: US)
  Receive Date: 20210505
  Receipt Date: 20210505
  Transmission Date: 20210717
  Serious: Yes (Other)
  Sender: FDA-Public Use
  Company Number: None

PATIENT
  Age: 78 Year
  Sex: Male
  Weight: 72 kg

DRUGS (7)
  1. LATANOPROST. [Concomitant]
     Active Substance: LATANOPROST
  2. DORZOLAMINE HCL [Concomitant]
  3. MODAFINIL TABS [Suspect]
     Active Substance: MODAFINIL
     Indication: FATIGUE
     Dosage: ?          QUANTITY:90 TABLET(S);?
     Route: 048
     Dates: start: 20210426, end: 20210430
  4. TIMOLOL. [Concomitant]
     Active Substance: TIMOLOL
  5. CPAP [Concomitant]
     Active Substance: DEVICE
  6. LISINOPRIL HCTZ [Concomitant]
     Active Substance: HYDROCHLOROTHIAZIDE\LISINOPRIL
  7. VITAMIN D3 [Concomitant]
     Active Substance: CHOLECALCIFEROL

REACTIONS (7)
  - Pain in extremity [None]
  - Pain [None]
  - Wound [None]
  - Urticaria [None]
  - Hypersensitivity [None]
  - Sensitive skin [None]
  - Lymphadenopathy [None]

NARRATIVE: CASE EVENT DATE: 20210430
